FAERS Safety Report 19836826 (Version 1)
Quarter: 2021Q3

REPORT INFORMATION
  Report Type: Spontaneous
  Country: IT (occurrence: IT)
  Receive Date: 20210915
  Receipt Date: 20210915
  Transmission Date: 20211014
  Serious: Yes (Hospitalization, Other)
  Sender: FDA-Public Use
  Company Number: IT-MYLANLABS-2021M1061771

PATIENT
  Age: 57 Year
  Sex: Female

DRUGS (4)
  1. LENALIDOMIDE [Suspect]
     Active Substance: LENALIDOMIDE
     Dosage: 25 MILLIGRAM, ON DAYS 1?21; 28?DAY SCHEDULE
     Route: 065
     Dates: start: 201610, end: 201810
  2. LENALIDOMIDE [Suspect]
     Active Substance: LENALIDOMIDE
     Indication: PLASMA CELL MYELOMA
     Dosage: 25 MILLIGRAM, ON DAYS 1?21; 28?DAY SCHEDULE, 5 MG FROM OCT?2016 TO OCT?2018
     Route: 065
     Dates: start: 201510
  3. DEXAMETHASONE. [Suspect]
     Active Substance: DEXAMETHASONE
     Indication: PLASMA CELL MYELOMA
     Dosage: 20 MILLIGRAM, ON DAYS 1, 2, 8, 9, 15, 16 (4 CYCLE)
     Route: 065
     Dates: start: 201510
  4. CARFILZOMIB [Suspect]
     Active Substance: CARFILZOMIB
     Indication: PLASMA CELL MYELOMA
     Dosage: 36 MILLIGRAM/SQ. METER, ON DAYS 1, 2, 8, 9, 15, 16 (4 CYCLICAL)
     Route: 065
     Dates: start: 201510

REACTIONS (1)
  - Acute leukaemia [Recovered/Resolved]

NARRATIVE: CASE EVENT DATE: 201909
